FAERS Safety Report 25752558 (Version 2)
Quarter: 2025Q3

REPORT INFORMATION
  Report Type: Report from Study
  Country: CO (occurrence: CO)
  Receive Date: 20250902
  Receipt Date: 20250903
  Transmission Date: 20251021
  Serious: Yes (Death)
  Sender: ABBVIE
  Company Number: CO-ABBVIE-6441875

PATIENT
  Age: 69 Year
  Sex: Male

DRUGS (1)
  1. VENCLEXTA [Suspect]
     Active Substance: VENETOCLAX
     Indication: Acute myeloid leukaemia
     Dosage: FORM STRENGTH: 100 MILLIGRAM?BOTTLE
     Route: 048
     Dates: start: 20250407, end: 20250818

REACTIONS (5)
  - Immunodeficiency [Fatal]
  - Sepsis [Fatal]
  - Pyrexia [Not Recovered/Not Resolved]
  - Hypotension [Fatal]
  - Tachycardia [Fatal]

NARRATIVE: CASE EVENT DATE: 20250816
